FAERS Safety Report 4934028-X (Version None)
Quarter: 2006Q1

REPORT INFORMATION
  Report Type: 
  Country: None (occurrence: None)
  Receive Date: 20060303
  Receipt Date: 20060220
  Transmission Date: 20060701
  Serious: Yes (Hospitalization, Other)
  Sender: FDA-Public Use
  Company Number: HQWYE922422FEB06

PATIENT
  Age: 55 Year
  Sex: Male

DRUGS (11)
  1. RAPAMUNE [Suspect]
     Indication: PROPHYLAXIS AGAINST TRANSPLANT REJECTION
     Dosage: SEE IMAGE, ORAL
     Route: 048
     Dates: end: 20060110
  2. RAPAMUNE [Suspect]
     Indication: PROPHYLAXIS AGAINST TRANSPLANT REJECTION
     Dosage: SEE IMAGE, ORAL
     Route: 048
     Dates: start: 20050831
  3. CIALIS [Suspect]
  4. ZENAPAX [Concomitant]
  5. MYCOPHENOLATE MOFETIL (MYCOPHENOLATE MOFETIL) [Concomitant]
  6. CYCLOSPORINE [Concomitant]
  7. PREDNISOLONE [Concomitant]
  8. OMEPRAZOLE [Concomitant]
  9. AMLODIPINE BESYLATE [Concomitant]
  10. ASPIRIN [Concomitant]
  11. TAHOR (ATORVASTATIN) [Concomitant]

REACTIONS (4)
  - DRUG INTERACTION [None]
  - GRAFT DYSFUNCTION [None]
  - KIDNEY TRANSPLANT REJECTION [None]
  - VASCULAR GRAFT COMPLICATION [None]
